FAERS Safety Report 4956717-3 (Version None)
Quarter: 2006Q1

REPORT INFORMATION
  Report Type: 
  Country: None (occurrence: None)
  Receive Date: 20060329
  Receipt Date: 20060322
  Transmission Date: 20060701
  Serious: Yes (Disabling)
  Sender: FDA-Public Use
  Company Number: JP-JPN-A200600991

PATIENT
  Age: 9 Year
  Sex: Male
  Weight: 24 kg

DRUGS (21)
  1. ALKERAN [Suspect]
     Indication: ALLOGENIC BONE MARROW TRANSPLANTATION THERAPY
     Route: 042
     Dates: start: 20051103, end: 20051104
  2. BUSULFAN [Concomitant]
     Indication: ALLOGENIC BONE MARROW TRANSPLANTATION THERAPY
     Route: 048
     Dates: start: 20051030, end: 20051102
  3. NEUTROGIN [Concomitant]
     Route: 058
     Dates: start: 20051202
  4. CYCLOSPORINE [Concomitant]
     Indication: IMMUNOSUPPRESSANT DRUG THERAPY
     Route: 065
     Dates: start: 20060104, end: 20060207
  5. METHOTREXATE [Concomitant]
     Indication: IMMUNOSUPPRESSANT DRUG THERAPY
     Route: 065
     Dates: start: 20051108, end: 20051223
  6. IMMUNE GLOBULIN INTRAVENOUS (HUMAN) [Concomitant]
     Route: 042
     Dates: start: 20051031
  7. ZOVIRAX [Concomitant]
     Route: 042
     Dates: start: 20051106, end: 20060106
  8. DEPAKENE [Concomitant]
     Route: 048
     Dates: start: 20051029, end: 20051104
  9. URSO [Concomitant]
     Route: 048
     Dates: start: 20051029, end: 20051118
  10. PRODIF [Concomitant]
     Route: 042
     Dates: start: 20051110, end: 20051219
  11. PANSPORIN [Concomitant]
     Route: 042
     Dates: start: 20051110, end: 20051111
  12. FIRSTCIN [Concomitant]
     Route: 042
     Dates: start: 20051111, end: 20051224
  13. FUNGUARD [Concomitant]
     Route: 042
     Dates: start: 20051111, end: 20051212
  14. TOBRACIN [Concomitant]
     Route: 030
     Dates: start: 20051112, end: 20051130
  15. UNKNOWN [Concomitant]
     Route: 030
     Dates: start: 20051112, end: 20051114
  16. FENTANEST [Concomitant]
     Route: 042
     Dates: start: 20051114, end: 20051119
  17. MINOCYCLINE HCL [Concomitant]
     Route: 042
     Dates: start: 20051114, end: 20051219
  18. SOLU-MEDROL [Concomitant]
     Route: 042
     Dates: start: 20051215, end: 20051217
  19. PREDONINE [Concomitant]
     Route: 048
     Dates: start: 20051222, end: 20060114
  20. UNKNOWN [Concomitant]
     Route: 042
     Dates: start: 20060106, end: 20060125
  21. BAKTAR [Concomitant]
     Route: 048
     Dates: start: 20051103

REACTIONS (5)
  - MUCOSAL INFLAMMATION [None]
  - NAUSEA [None]
  - ODYNOPHAGIA [None]
  - STOMATITIS [None]
  - VOMITING [None]
